FAERS Safety Report 11164094 (Version 1)
Quarter: 2015Q2

REPORT INFORMATION
  Report Type: Spontaneous
  Country: US (occurrence: US)
  Receive Date: 20150604
  Receipt Date: 20150604
  Transmission Date: 20150821
  Serious: Yes (Hospitalization, Other)
  Sender: FDA-Public Use
  Company Number: US-ELI_LILLY_AND_COMPANY-US201505009520

PATIENT
  Age: 66 Year
  Sex: Male

DRUGS (4)
  1. PROZAC [Suspect]
     Active Substance: FLUOXETINE HYDROCHLORIDE
     Dosage: 80 MG, QD
     Route: 065
  2. PROZAC [Suspect]
     Active Substance: FLUOXETINE HYDROCHLORIDE
     Dosage: 120 MG, UNKNOWN
     Route: 065
  3. PROZAC [Suspect]
     Active Substance: FLUOXETINE HYDROCHLORIDE
     Indication: DEPRESSION
     Dosage: 100 MG, UNKNOWN
     Route: 065
     Dates: start: 1995
  4. INSULIN [Concomitant]
     Active Substance: INSULIN NOS
     Indication: PRODUCT USED FOR UNKNOWN INDICATION
     Dosage: UNK, UNKNOWN
     Route: 065

REACTIONS (10)
  - Drug withdrawal syndrome [Unknown]
  - Depressive symptom [Unknown]
  - Decreased appetite [Unknown]
  - Suicidal ideation [Unknown]
  - Photopsia [Unknown]
  - Abulia [Unknown]
  - Visual impairment [Unknown]
  - Headache [Unknown]
  - Suicidal ideation [Unknown]
  - Overdose [Recovered/Resolved]

NARRATIVE: CASE EVENT DATE: 201501
